FAERS Safety Report 24406159 (Version 1)
Quarter: 2024Q4

REPORT INFORMATION
  Report Type: Spontaneous
  Country: US (occurrence: None)
  Receive Date: 20241005
  Receipt Date: 20241005
  Transmission Date: 20250115
  Serious: Yes (Other)
  Sender: Public
  Company Number: None

PATIENT
  Age: 88 Year
  Sex: Female
  Weight: 81 kg

DRUGS (4)
  1. AMLODIPINE BESYLATE AND BENAZEPRIL HYDROCHLORIDE [Suspect]
     Active Substance: AMLODIPINE BESYLATE\BENAZEPRIL HYDROCHLORIDE
     Indication: Hypertension
     Dosage: OTHER QUANTITY : 90 CAPSULE(S);?
     Route: 048
  2. FENOFIBRATE [Concomitant]
     Active Substance: FENOFIBRATE
  3. VITAMIN C [Concomitant]
     Active Substance: ASCORBIC ACID
  4. multivitamin for seniors [Concomitant]

REACTIONS (2)
  - Yellow skin [None]
  - Malaise [None]

NARRATIVE: CASE EVENT DATE: 20241004
